FAERS Safety Report 5916853-1 (Version None)
Quarter: 2008Q4

REPORT INFORMATION
  Report Type: 
  Country: None (occurrence: None)
  Receive Date: 20081013
  Receipt Date: 20081001
  Transmission Date: 20090506
  Serious: Yes (Other)
  Sender: FDA-Public Use
  Company Number: US-PFIZER INC-2008083866

PATIENT

DRUGS (4)
  1. DILANTIN [Suspect]
     Indication: EPILEPSY
     Route: 064
  2. DEPAKOTE [Suspect]
     Indication: EPILEPSY
  3. LAMICTAL [Suspect]
     Indication: EPILEPSY
  4. FOLIC ACID [Concomitant]

REACTIONS (5)
  - CLUBBING [None]
  - DANDY-WALKER SYNDROME [None]
  - DRUG EXPOSURE DURING PREGNANCY [None]
  - HEAD DEFORMITY [None]
  - HEART DISEASE CONGENITAL [None]
